FAERS Safety Report 6963979-X (Version None)
Quarter: 2010Q3

REPORT INFORMATION
  Report Type: 
  Country: None (occurrence: None)
  Receive Date: 20100902
  Receipt Date: 20100902
  Transmission Date: 20110219
  Serious: No
  Sender: FDA-Public Use
  Company Number: None

PATIENT

DRUGS (1)
  1. SINGULAIR [Suspect]
     Dosage: ONCE DAILY PO
     Route: 048
     Dates: start: 20030101, end: 20080101

REACTIONS (3)
  - CONTUSION [None]
  - EPISTAXIS [None]
  - REACTION TO DRUG EXCIPIENTS [None]
